FAERS Safety Report 24844670 (Version 1)
Quarter: 2025Q1

REPORT INFORMATION
  Report Type: Spontaneous
  Country: FR (occurrence: FR)
  Receive Date: 20250115
  Receipt Date: 20250115
  Transmission Date: 20250409
  Serious: Yes (Hospitalization, Other)
  Sender: CHEPLAPHARM
  Company Number: None

PATIENT
  Age: 0 Year
  Sex: Female
  Weight: 5.275 kg

DRUGS (8)
  1. HYDROXYUREA [Suspect]
     Active Substance: HYDROXYUREA
     Indication: Hyperleukocytosis
     Dosage: DAILY DOSE: 150 MILLIGRAM
     Route: 048
     Dates: start: 20241118, end: 20241202
  2. SIKLOS [Suspect]
     Active Substance: HYDROXYUREA
     Indication: Hyperleukocytosis
     Dosage: DAILY DOSE: 150 MILLIGRAM
     Route: 048
     Dates: start: 20241120, end: 20241202
  3. AMOXICILLIN [Concomitant]
     Active Substance: AMOXICILLIN
     Indication: Lung opacity
     Dosage: DAILY DOSE: 100 MILLIGRAM
  4. AMOXICILLIN [Concomitant]
     Active Substance: AMOXICILLIN
     Indication: Pyrexia
     Dosage: DAILY DOSE: 100 MILLIGRAM
  5. AZITHROMYCIN [Concomitant]
     Active Substance: AZITHROMYCIN
     Indication: Pertussis
     Dates: start: 20241116
  6. AZITHROMYCIN [Concomitant]
     Active Substance: AZITHROMYCIN
     Indication: Pertussis
     Dates: start: 20241124, end: 20241126
  7. CEFOTAXIME SODIUM [Concomitant]
     Active Substance: CEFOTAXIME SODIUM
  8. ACETAMINOPHEN [Concomitant]
     Active Substance: ACETAMINOPHEN

REACTIONS (5)
  - Haemolytic anaemia [Recovering/Resolving]
  - Catheter site thrombosis [Unknown]
  - Thrombotic thrombocytopenic purpura [Unknown]
  - Condition aggravated [Unknown]
  - Off label use [Recovered/Resolved]

NARRATIVE: CASE EVENT DATE: 20241124
